FAERS Safety Report 4700654-6 (Version None)
Quarter: 2005Q2

REPORT INFORMATION
  Report Type: 
  Country: None (occurrence: None)
  Receive Date: 20050627
  Receipt Date: 20050613
  Transmission Date: 20051028
  Serious: Yes (Hospitalization)
  Sender: FDA-Public Use
  Company Number: 2005076365

PATIENT
  Age: 56 Year
  Sex: Female

DRUGS (11)
  1. ZITHROMAX [Suspect]
     Indication: UPPER RESPIRATORY TRACT INFLAMMATION
     Dosage: 500 MG; ORAL
     Route: 048
     Dates: start: 20050510, end: 20050511
  2. SOLETON (ZALTOPROFEN) [Suspect]
     Indication: PYREXIA
     Dosage: 3 TABLETS (3 IN 1 D); ORAL
     Route: 048
     Dates: start: 20050510
  3. IBUPROFEN [Suspect]
     Indication: PYREXIA
     Dosage: 6 TABLETS (3 IN 1 D); ORAL
     Route: 048
     Dates: start: 20050510
  4. NORVASC [Concomitant]
  5. SG TABLET (SULFAGUANIDINE) [Concomitant]
  6. FLOMOX (CEFCAPENE PIVOXIL HYDROCHLORIDE) [Concomitant]
  7. LOXONIN (LOXOPROFEN SODIUM) [Concomitant]
  8. SP/JPN/ (DEQUALINIUM CHLORIDE) [Concomitant]
  9. ISODINE (POVIDONE-IODINE) [Concomitant]
  10. DEPAS (ETIZOLAM) [Concomitant]
  11. MUCOSOLVAN (AMBROXOL HYDROCHLORIDE) [Concomitant]

REACTIONS (4)
  - CONVULSION [None]
  - DEPRESSED LEVEL OF CONSCIOUSNESS [None]
  - HEPATIC FUNCTION ABNORMAL [None]
  - SNORING [None]
